FAERS Safety Report 6159015-8 (Version None)
Quarter: 2009Q2

REPORT INFORMATION
  Report Type: 
  Country: None (occurrence: None)
  Receive Date: 20090417
  Receipt Date: 20090407
  Transmission Date: 20091009
  Serious: Yes (Hospitalization)
  Sender: FDA-Public Use
  Company Number: US-PFIZER INC-2009194698

PATIENT
  Age: 88 Year
  Sex: Female

DRUGS (3)
  1. ZOLOFT [Suspect]
     Indication: DEPRESSION
     Dosage: 50 MG, UNK
  2. NEBIVOLOL HYDROCHLORIDE [Suspect]
     Indication: CARDIAC FAILURE CONGESTIVE
     Dosage: 5 MG, 1X/DAY
  3. NEBIVOLOL HYDROCHLORIDE [Suspect]
     Indication: TACHYCARDIA

REACTIONS (2)
  - DRUG INTERACTION [None]
  - HEART RATE DECREASED [None]
